FAERS Safety Report 13127558 (Version 1)
Quarter: 2017Q1

REPORT INFORMATION
  Report Type: Report from Study
  Country: None (occurrence: US)
  Receive Date: 20170118
  Receipt Date: 20170118
  Transmission Date: 20170428
  Serious: Yes (Other)
  Sender: FDA-Public Use
  Company Number: US-BIOGEN-2016BI00326600

PATIENT
  Age: 49 Year
  Sex: Female

DRUGS (1)
  1. ZINBRYTA [Suspect]
     Active Substance: DACLIZUMAB
     Indication: MULTIPLE SCLEROSIS
     Route: 058
     Dates: start: 201610

REACTIONS (5)
  - Cholecystitis [Recovered/Resolved]
  - Influenza like illness [Unknown]
  - Respiratory symptom [Unknown]
  - Poor quality sleep [Unknown]
  - Pain [Unknown]

NARRATIVE: CASE EVENT DATE: 20161129
